FAERS Safety Report 7213427-X (Version None)
Quarter: 2011Q1

REPORT INFORMATION
  Report Type: 
  Country: None (occurrence: None)
  Receive Date: 20110106
  Receipt Date: 20110104
  Transmission Date: 20110831
  Serious: Yes (Other)
  Sender: FDA-Public Use
  Company Number: AR-GENZYME-FABR-1001735

PATIENT
  Age: 29 Year
  Sex: Male

DRUGS (2)
  1. FABRAZYME [Suspect]
     Indication: FABRY'S DISEASE
     Dosage: UNK
     Route: 042
     Dates: start: 20081001
  2. FABRAZYME [Suspect]
     Dosage: 1 MG/KG, Q2W
     Route: 042
     Dates: start: 20020901, end: 20060101

REACTIONS (6)
  - DYSPNOEA [None]
  - CENTRAL NERVOUS SYSTEM LESION [None]
  - CHEST PAIN [None]
  - RENAL FAILURE CHRONIC [None]
  - LEFT VENTRICULAR HYPERTROPHY [None]
  - DIASTOLIC DYSFUNCTION [None]
